FAERS Safety Report 5059236-1 (Version None)
Quarter: 2006Q3

REPORT INFORMATION
  Report Type: 
  Country: None (occurrence: None)
  Receive Date: 20060718
  Receipt Date: 20060705
  Transmission Date: 20061208
  Serious: Yes (Hospitalization)
  Sender: FDA-Public Use
  Company Number: 2006084855

PATIENT
  Sex: Male

DRUGS (1)
  1. SUTENT [Suspect]
     Indication: GASTROINTESTINAL STROMAL TUMOUR
     Dosage: 50 MG (50 MG, INTERVAL : EVERY DAY), ORAL
     Route: 048

REACTIONS (7)
  - ABSCESS [None]
  - BLADDER PERFORATION [None]
  - GASTROINTESTINAL STROMAL TUMOUR [None]
  - LARGE INTESTINE PERFORATION [None]
  - MALIGNANT NEOPLASM PROGRESSION [None]
  - STOMATITIS [None]
  - WEIGHT INCREASED [None]
